FAERS Safety Report 12650842 (Version 1)
Quarter: 2016Q3

REPORT INFORMATION
  Report Type: Spontaneous
  Country: US (occurrence: US)
  Receive Date: 20160815
  Receipt Date: 20160815
  Transmission Date: 20161109
  Serious: No
  Sender: FDA-Public Use
  Company Number: US-JAZZ-2016-US-005134

PATIENT
  Sex: Female

DRUGS (14)
  1. LEXAPRO [Concomitant]
     Active Substance: ESCITALOPRAM OXALATE
  2. XANAX [Concomitant]
     Active Substance: ALPRAZOLAM
  3. MELATONIN [Concomitant]
     Active Substance: MELATONIN
  4. TRAZODONE [Concomitant]
     Active Substance: TRAZODONE HYDROCHLORIDE
  5. XYREM [Suspect]
     Active Substance: SODIUM OXYBATE
     Dosage: DOSE ADJUSTMENTS
     Route: 048
  6. XYREM [Suspect]
     Active Substance: SODIUM OXYBATE
     Indication: SLEEP DISORDER
     Dosage: 3 G, BID
     Route: 048
     Dates: start: 201401, end: 201408
  7. ADDERALL [Concomitant]
     Active Substance: AMPHETAMINE ASPARTATE\AMPHETAMINE SULFATE\DEXTROAMPHETAMINE SACCHARATE\DEXTROAMPHETAMINE SULFATE
  8. ADVIL [Concomitant]
     Active Substance: IBUPROFEN
  9. XYREM [Suspect]
     Active Substance: SODIUM OXYBATE
     Dosage: 5 G, BID
     Route: 048
     Dates: start: 201504
  10. GABAPENTIN. [Concomitant]
     Active Substance: GABAPENTIN
  11. LAMOTRIGINE. [Concomitant]
     Active Substance: LAMOTRIGINE
  12. LITHIUM CARBONATE. [Concomitant]
     Active Substance: LITHIUM CARBONATE
  13. OMEPRAZOLE. [Concomitant]
     Active Substance: OMEPRAZOLE
  14. PRAZOSIN [Concomitant]
     Active Substance: PRAZOSIN

REACTIONS (1)
  - Extra dose administered [Unknown]
